FAERS Safety Report 15802604 (Version 2)
Quarter: 2019Q1

REPORT INFORMATION
  Report Type: Spontaneous
  Country: US (occurrence: US)
  Receive Date: 20190109
  Receipt Date: 20190111
  Transmission Date: 20190417
  Serious: Yes (Death, Hospitalization)
  Sender: FDA-Public Use
  Company Number: US-BAYER-2019-006239

PATIENT
  Age: 65 Year
  Sex: Male

DRUGS (9)
  1. BACLOFEN. [Concomitant]
     Active Substance: BACLOFEN
  2. MELOXICAM. [Concomitant]
     Active Substance: MELOXICAM
  3. ACETYLSALICYLIC ACID (} 100 MG) [Suspect]
     Active Substance: ASPIRIN
     Dosage: UNK
     Route: 048
  4. LAMOTRIGINE. [Concomitant]
     Active Substance: LAMOTRIGINE
  5. TIOTROPIUM [Concomitant]
     Active Substance: TIOTROPIUM
  6. TAMSULOSIN [Concomitant]
     Active Substance: TAMSULOSIN
  7. ALPRAZOLAM. [Concomitant]
     Active Substance: ALPRAZOLAM
  8. FLUTICASONE. [Concomitant]
     Active Substance: FLUTICASONE
  9. ZOLPIDEM [Concomitant]
     Active Substance: ZOLPIDEM\ZOLPIDEM TARTRATE

REACTIONS (7)
  - Pulmonary alveolar haemorrhage [Fatal]
  - Sepsis [Fatal]
  - Toxicity to various agents [Fatal]
  - Product use issue [Fatal]
  - Bradycardia [Fatal]
  - Cardiac arrest [Fatal]
  - Accidental overdose [Fatal]
